FAERS Safety Report 5364901-2 (Version None)
Quarter: 2007Q2

REPORT INFORMATION
  Report Type: 
  Country: None (occurrence: None)
  Receive Date: 20070530
  Receipt Date: 20070123
  Transmission Date: 20071010
  Serious: No
  Sender: FDA-Public Use
  Company Number: 2007PV028989

PATIENT
  Age: 62 Year
  Sex: Female

DRUGS (6)
  1. BYETTA [Suspect]
     Indication: DRUG USE FOR UNKNOWN INDICATION
     Dosage: 10 MCG;TID;SC; 10 MCG;BID;SC; 5 MCG;BID;SC
     Route: 058
     Dates: start: 20050601, end: 20060901
  2. BYETTA [Suspect]
     Indication: DRUG USE FOR UNKNOWN INDICATION
     Dosage: 10 MCG;TID;SC; 10 MCG;BID;SC; 5 MCG;BID;SC
     Route: 058
     Dates: start: 20060901, end: 20061001
  3. BYETTA [Suspect]
     Indication: DRUG USE FOR UNKNOWN INDICATION
     Dosage: 10 MCG;TID;SC; 10 MCG;BID;SC; 5 MCG;BID;SC
     Route: 058
     Dates: start: 20061001, end: 20070101
  4. THYROXIN [Concomitant]
  5. THEOPHYLLINE [Concomitant]
  6. HUMULIN 70/30 [Concomitant]

REACTIONS (3)
  - EXTRASYSTOLES [None]
  - NAUSEA [None]
  - WEIGHT DECREASED [None]
